FAERS Safety Report 4862138-4 (Version None)
Quarter: 2005Q4

REPORT INFORMATION
  Report Type: 
  Country: None (occurrence: None)
  Receive Date: 20051221
  Receipt Date: 20031006
  Transmission Date: 20060501
  Serious: Yes (Death, Life-Threatening, Hospitalization)
  Sender: FDA-Public Use
  Company Number: CA-BRISTOL-MYERS SQUIBB COMPANY-12404778

PATIENT
  Age: 90 Year
  Sex: Female

DRUGS (6)
  1. GATIFLOXACIN TABS [Suspect]
     Indication: PNEUMONIA
     Route: 048
     Dates: start: 20030912, end: 20030917
  2. VERAPAMIL [Concomitant]
     Dosage: YEARS
  3. DYAZIDE [Concomitant]
     Route: 048
  4. WARFARIN [Concomitant]
     Dosage: YEARS
     Route: 048
  5. TAMOXIFEN [Concomitant]
     Dosage: YEARS
     Route: 048
  6. DIMENHYDRINATE [Concomitant]
     Route: 048
     Dates: start: 20030915, end: 20030916

REACTIONS (12)
  - ABDOMINAL PAIN [None]
  - BLOOD AMYLASE INCREASED [None]
  - BLOOD CREATININE INCREASED [None]
  - BLOOD POTASSIUM [None]
  - BLOOD SODIUM DECREASED [None]
  - BLOOD UREA [None]
  - CONFUSIONAL STATE [None]
  - DYSPNOEA [None]
  - HYPERGLYCAEMIA [None]
  - INTERNATIONAL NORMALISED RATIO INCREASED [None]
  - LEUKOCYTOSIS [None]
  - PANCREATITIS [None]
